FAERS Safety Report 7231241-6 (Version None)
Quarter: 2011Q1

REPORT INFORMATION
  Report Type: 
  Country: None (occurrence: None)
  Receive Date: 20110118
  Receipt Date: 20110113
  Transmission Date: 20110831
  Serious: Yes (Disabling)
  Sender: FDA-Public Use
  Company Number: B0693972A

PATIENT
  Age: 66 Year
  Sex: Male

DRUGS (4)
  1. ASPIRIN [Suspect]
     Dosage: 100MG PER DAY
     Route: 048
  2. MEVALOTIN [Concomitant]
     Dosage: 80MG PER DAY
     Route: 048
  3. ARIXTRA [Suspect]
     Dosage: 2.5MG PER DAY
     Route: 058
     Dates: start: 20091124, end: 20091129
  4. PLAVIX [Suspect]
     Dosage: 75MG PER DAY
     Route: 048

REACTIONS (2)
  - EYE HAEMORRHAGE [None]
  - VISION BLURRED [None]
